FAERS Safety Report 8008045-X (Version None)
Quarter: 2011Q4

REPORT INFORMATION
  Report Type: 
  Country: None (occurrence: None)
  Receive Date: 20111227
  Receipt Date: 20111219
  Transmission Date: 20120403
  Serious: Yes (Hospitalization, Other)
  Sender: FDA-Public Use
  Company Number: PHHY2011BR110577

PATIENT
  Sex: Male
  Weight: 107 kg

DRUGS (9)
  1. BAMIFIX [Concomitant]
     Dosage: 600 MG 1 TABLET EVERY 12 HOURS
     Route: 048
  2. FORMOTEROL FUMARATE [Suspect]
     Indication: EMPHYSEMA
     Dosage: 12/400 MCG  1 CAPSULE TWICE A DAY
  3. ASPIRIN [Concomitant]
  4. WARFARIN SODIUM [Concomitant]
     Dosage: 5 MG, QD
     Route: 048
  5. OMEPRAZOLE [Concomitant]
     Indication: GASTRIC HAEMORRHAGE
     Dosage: 20 MG, QD
     Route: 048
  6. ASPIRIN [Concomitant]
     Indication: ANTICOAGULANT THERAPY
     Route: 048
  7. BEROTEC [Concomitant]
     Indication: EMPHYSEMA
     Dosage: 5 MG 1 INHALATION EVERY FOUR HOURS
  8. FUROSEMIDE [Concomitant]
     Indication: DIURETIC THERAPY
     Dosage: 40 MG, QD
     Route: 048
  9. ALBUTEROL [Concomitant]
     Dosage: 2 MG 1 INHALATION EVERY 06 OR 04 HOURS

REACTIONS (7)
  - AMNESIA [None]
  - MUSCLE SPASMS [None]
  - HYPOAESTHESIA [None]
  - OEDEMA PERIPHERAL [None]
  - INFARCTION [None]
  - FATIGUE [None]
  - DYSPNOEA [None]
